FAERS Safety Report 9027899 (Version 1)
Quarter: 2013Q1

REPORT INFORMATION
  Report Type: Spontaneous
  Country: US (occurrence: None)
  Receive Date: 20130114
  Receipt Date: 20130114
  Transmission Date: 20140127
  Serious: No
  Sender: FDA-Public Use
  Company Number: None

PATIENT
  Age: 40 Year
  Sex: Female
  Weight: 72.58 kg

DRUGS (2)
  1. IBUPROFEN [Suspect]
     Indication: CARDIAC DISORDER
     Dosage: 1-2 DAILY
  2. NAPROXEN [Suspect]
     Indication: DYSMENORRHOEA
     Dosage: SINCE 2000 THEREABOUT?3-4/DAY 3 DAYS A MONTH
     Dates: start: 2000

REACTIONS (4)
  - Drug ineffective [None]
  - Alopecia [None]
  - Atrophy [None]
  - Product tampering [None]
